FAERS Safety Report 10103152 (Version 2)
Quarter: 2014Q2

REPORT INFORMATION
  Report Type: Spontaneous
  Country: US (occurrence: US)
  Receive Date: 20140424
  Receipt Date: 20140424
  Transmission Date: 20141212
  Serious: Yes (Death, Hospitalization)
  Sender: FDA-Public Use
  Company Number: US-BRISTOL-MYERS SQUIBB COMPANY-20134995

PATIENT
  Age: 71 Year
  Sex: Female

DRUGS (6)
  1. ELIQUIS [Suspect]
     Indication: ATRIAL FIBRILLATION
     Route: 048
     Dates: start: 20131013, end: 20131215
  2. OXYCONTIN [Concomitant]
  3. METFORMIN [Concomitant]
     Dosage: 1DF=1000-UNITS NOS
  4. LEVOTHYROXINE [Concomitant]
  5. LISINOPRIL [Concomitant]
  6. TRUVADA [Concomitant]

REACTIONS (1)
  - Cerebral haemorrhage [Fatal]
